FAERS Safety Report 11791361 (Version 1)
Quarter: 2015Q4

REPORT INFORMATION
  Report Type: Spontaneous
  Country: FR (occurrence: FR)
  Receive Date: 20151201
  Receipt Date: 20151201
  Transmission Date: 20160305
  Serious: Yes (Hospitalization)
  Sender: FDA-Public Use
  Company Number: PHHY2015FR156334

PATIENT
  Age: 51 Year
  Sex: Female

DRUGS (5)
  1. TEGRETOL [Suspect]
     Active Substance: CARBAMAZEPINE
     Indication: PSYCHOTIC DISORDER
     Dosage: UNK
     Route: 048
     Dates: start: 2000
  2. XANAX [Suspect]
     Active Substance: ALPRAZOLAM
     Indication: PRODUCT USED FOR UNKNOWN INDICATION
     Route: 048
  3. LEVOTHYROX [Suspect]
     Active Substance: LEVOTHYROXINE
     Indication: HYPOTHYROIDISM
     Dosage: 75 UG, QD
     Route: 048
     Dates: start: 201504
  4. PLAQUENIL [Suspect]
     Active Substance: HYDROXYCHLOROQUINE SULFATE
     Indication: SLE ARTHRITIS
     Dosage: 200 MG, TID
     Route: 048
     Dates: start: 2012
  5. CORTANCYL [Suspect]
     Active Substance: PREDNISONE
     Indication: ACUTE PSYCHOSIS
     Dosage: UNK
     Route: 048
     Dates: start: 201504, end: 201504

REACTIONS (1)
  - Acute psychosis [Recovering/Resolving]

NARRATIVE: CASE EVENT DATE: 201507
